FAERS Safety Report 22054939 (Version 1)
Quarter: 2023Q1

REPORT INFORMATION
  Report Type: Spontaneous
  Country: IT (occurrence: IT)
  Receive Date: 20230302
  Receipt Date: 20230302
  Transmission Date: 20230418
  Serious: Yes (Hospitalization)
  Sender: FDA-Public Use
  Company Number: IT-PFIZER INC-202300087201

PATIENT
  Age: 34 Year
  Sex: Female
  Weight: 78 kg

DRUGS (2)
  1. METHOTREXATE SODIUM [Suspect]
     Active Substance: METHOTREXATE SODIUM
     Indication: Psoriatic arthropathy
     Dosage: 10 MG, WEEKLY
     Route: 058
     Dates: start: 201712, end: 20200922
  2. ETANERCEPT [Suspect]
     Active Substance: ETANERCEPT
     Indication: Psoriatic arthropathy
     Dosage: 50 MG, WEEKLY
     Route: 058
     Dates: start: 201712, end: 20200922

REACTIONS (3)
  - Lymphadenopathy [Recovering/Resolving]
  - Headache [Unknown]
  - Arteriosclerosis [Unknown]
